FAERS Safety Report 5786003-3 (Version None)
Quarter: 2008Q2

REPORT INFORMATION
  Report Type: 
  Country: None (occurrence: None)
  Receive Date: 20080620
  Receipt Date: 20080620
  Transmission Date: 20081010
  Serious: Yes (Hospitalization, Other)
  Sender: FDA-Public Use
  Company Number: None

PATIENT
  Age: 46 Year
  Sex: Male
  Weight: 108.8633 kg

DRUGS (2)
  1. JANUVIA [Suspect]
     Indication: DIABETES MELLITUS
     Dosage: 100MG QD PO
     Route: 048
     Dates: start: 20060606, end: 20080401
  2. JANUVIA [Suspect]
     Indication: HYPERGLYCAEMIA
     Dosage: 100MG QD PO
     Route: 048
     Dates: start: 20060606, end: 20080401

REACTIONS (8)
  - ABDOMINAL PAIN [None]
  - DIARRHOEA [None]
  - DRUG EFFECT DECREASED [None]
  - ERUCTATION [None]
  - FLATULENCE [None]
  - FRUSTRATION [None]
  - NAUSEA [None]
  - VOMITING [None]
